FAERS Safety Report 6572082-2 (Version None)
Quarter: 2010Q1

REPORT INFORMATION
  Report Type: 
  Country: None (occurrence: None)
  Receive Date: 20100201
  Receipt Date: 20100116
  Transmission Date: 20100710
  Serious: Yes (Other)
  Sender: FDA-Public Use
  Company Number: MC201000024

PATIENT
  Age: 52 Year
  Sex: Male

DRUGS (4)
  1. ANGIOMAX [Suspect]
     Indication: PERCUTANEOUS CORONARY INTERVENTION
     Dosage: INTRAVENOUS
     Route: 042
     Dates: start: 20091229, end: 20091229
  2. PLAVIX [Suspect]
  3. HEPARIN [Suspect]
  4. REOPRO [Suspect]

REACTIONS (5)
  - CORONARY ARTERY DISSECTION [None]
  - DRUG INEFFECTIVE [None]
  - MYOCARDIAL INFARCTION [None]
  - POST PROCEDURAL HAEMORRHAGE [None]
  - THROMBOSIS IN DEVICE [None]
